FAERS Safety Report 15376708 (Version 8)
Quarter: 2019Q1

REPORT INFORMATION
  Report Type: Spontaneous
  Country: CA (occurrence: CA)
  Receive Date: 20180913
  Receipt Date: 20190213
  Transmission Date: 20190417
  Serious: Yes (Hospitalization, Other)
  Sender: FDA-Public Use
  Company Number: CA-CELLTRION INC.-2018CA021686

PATIENT

DRUGS (12)
  1. INFLECTRA [Suspect]
     Active Substance: INFLIXIMAB-DYYB
     Dosage: 10 MG/KG (820MG), (EVERY 6 WEEKS THEN EVERY 8 WEEKS)
     Route: 042
     Dates: start: 20180830
  2. INFLECTRA [Suspect]
     Active Substance: INFLIXIMAB-DYYB
     Dosage: 10 MG/KG (820MG), (EVERY 6 WEEKS THEN EVERY 8 WEEKS)
     Route: 042
     Dates: start: 20180830
  3. SOLU-MEDROL [Concomitant]
     Active Substance: METHYLPREDNISOLONE SODIUM SUCCINATE
     Dosage: 20 MG, TID
     Route: 042
  4. METHYLPREDNISOLONE. [Concomitant]
     Active Substance: METHYLPREDNISOLONE
     Dosage: UNK
     Dates: start: 201809
  5. PREDNISONE. [Concomitant]
     Active Substance: PREDNISONE
     Dosage: UNK
     Dates: start: 201809
  6. INFLECTRA [Suspect]
     Active Substance: INFLIXIMAB-DYYB
     Dosage: 10 MG/KG (820MG), (EVERY 6 WEEKS THEN EVERY 8 WEEKS)
     Route: 042
     Dates: start: 20190124, end: 20190124
  7. INFLECTRA [Suspect]
     Active Substance: INFLIXIMAB-DYYB
     Dosage: 10 MG/KG (820MG), (EVERY 6 WEEKS THEN EVERY 8 WEEKS)
     Route: 042
     Dates: start: 20190124
  8. INFLECTRA [Suspect]
     Active Substance: INFLIXIMAB-DYYB
     Indication: COLITIS ULCERATIVE
     Dosage: 408 MG, (EVERY 0, 2, 6 WEEKS, THEN EVERY 8 WEEKS)
     Route: 042
     Dates: start: 20180717
  9. INFLECTRA [Suspect]
     Active Substance: INFLIXIMAB-DYYB
     Dosage: 10 MG/KG (820MG), (EVERY 6 WEEKS THEN EVERY 8 WEEKS)
     Route: 042
     Dates: start: 20180830
  10. INFLECTRA [Suspect]
     Active Substance: INFLIXIMAB-DYYB
     Dosage: 10 MG/KG (820MG), (EVERY 6 WEEKS THEN EVERY 8 WEEKS)
     Route: 042
     Dates: start: 20181221, end: 20181221
  11. INFLECTRA [Suspect]
     Active Substance: INFLIXIMAB-DYYB
     Dosage: 10 MG/KG (820MG), (EVERY 6 WEEKS THEN EVERY 8 WEEKS)
     Route: 042
     Dates: start: 20181029, end: 20181029
  12. INFLECTRA [Suspect]
     Active Substance: INFLIXIMAB-DYYB
     Dosage: 408 MG, (EVERY 0, 2, 6 WEEKS, THEN EVERY 8 WEEKS)
     Route: 042
     Dates: start: 20180802, end: 20180802

REACTIONS (6)
  - Drug ineffective [Not Recovered/Not Resolved]
  - Condition aggravated [Not Recovered/Not Resolved]
  - Frustration tolerance decreased [Unknown]
  - Blood pressure fluctuation [Unknown]
  - Product use issue [Unknown]
  - Malaise [Unknown]

NARRATIVE: CASE EVENT DATE: 20180717
